FAERS Safety Report 24897314 (Version 1)
Quarter: 2025Q1

REPORT INFORMATION
  Report Type: Spontaneous
  Country: TR (occurrence: TR)
  Receive Date: 20250129
  Receipt Date: 20250129
  Transmission Date: 20250409
  Serious: Yes (Other)
  Sender: NOVARTIS
  Company Number: TR-002147023-NVSC2025TR011291

PATIENT
  Age: 18 Year
  Sex: Female

DRUGS (3)
  1. TEGRETOL XR [Suspect]
     Active Substance: CARBAMAZEPINE
     Indication: Epilepsy
     Dosage: 600 MG, BID (SERIAL NUMBER 2114526510421613)
     Route: 065
  2. CLOBAZAM [Concomitant]
     Active Substance: CLOBAZAM
     Indication: Product used for unknown indication
     Route: 065
  3. Convulex [Concomitant]
     Indication: Product used for unknown indication
     Route: 065

REACTIONS (7)
  - Seizure [Unknown]
  - Constipation [Unknown]
  - Aggression [Unknown]
  - Eructation [Unknown]
  - Dysphagia [Unknown]
  - Product use complaint [Unknown]
  - Wrong technique in product usage process [Unknown]
